FAERS Safety Report 25105234 (Version 1)
Quarter: 2025Q1

REPORT INFORMATION
  Report Type: Spontaneous
  Country: US (occurrence: None)
  Receive Date: 20250320
  Receipt Date: 20250320
  Transmission Date: 20250409
  Serious: No
  Sender: FDA-CTU
  Company Number: None

PATIENT
  Age: 52 Year
  Sex: Male

DRUGS (1)
  1. TIRZEPATIDE [Suspect]
     Active Substance: TIRZEPATIDE
     Indication: Diabetes mellitus
     Dates: start: 20240617, end: 20240709

REACTIONS (1)
  - Flatulence [None]

NARRATIVE: CASE EVENT DATE: 20240709
